FAERS Safety Report 4452451-7 (Version None)
Quarter: 2004Q3

REPORT INFORMATION
  Report Type: 
  Country: None (occurrence: None)
  Receive Date: 20040917
  Receipt Date: 20040824
  Transmission Date: 20050211
  Serious: Yes (Hospitalization)
  Sender: FDA-Public Use
  Company Number: PHEH2004US09179

PATIENT
  Sex: Male

DRUGS (11)
  1. ZOLEDRONATE [Suspect]
     Indication: PROSTATE CANCER METASTATIC
     Dosage: UNK/UNK
  2. DURAGESIC [Suspect]
  3. LUPRON [Concomitant]
  4. OXYCONTIN [Concomitant]
  5. HYDROCHLOROTHIAZIDE [Concomitant]
     Dosage: 50 MG, UNK
  6. LIPITOR [Concomitant]
     Dosage: 40 MG, UNK
  7. METOPROLOL [Concomitant]
     Dosage: 50 MG, UNK
  8. ACCUPRIL [Concomitant]
     Dosage: 40 MG, UNK
  9. APO-FERROUS GLUCONATE [Concomitant]
     Dosage: 300 MG, UNK
  10. RANITIDINE [Concomitant]
     Dosage: 150 MG, UNK
  11. ECOTRIN [Concomitant]
     Dosage: 81 MG, UNK

REACTIONS (8)
  - BLOOD ALBUMIN DECREASED [None]
  - BLOOD CALCIUM DECREASED [None]
  - BLOOD POTASSIUM DECREASED [None]
  - BONE PAIN [None]
  - CONFUSIONAL STATE [None]
  - DELUSION [None]
  - GASTROINTESTINAL HAEMORRHAGE [None]
  - LABORATORY TEST ABNORMAL [None]
